FAERS Safety Report 21517535 (Version 2)
Quarter: 2023Q2

REPORT INFORMATION
  Report Type: Spontaneous
  Country: US (occurrence: US)
  Receive Date: 20221028
  Receipt Date: 20230629
  Transmission Date: 20230721
  Serious: Yes (Other)
  Sender: FDA-Public Use
  Company Number: US-SA-SAC20221021000910

PATIENT
  Sex: Female

DRUGS (4)
  1. AUBAGIO [Suspect]
     Active Substance: TERIFLUNOMIDE
     Indication: Multiple sclerosis
     Dosage: UNK
  2. VUMERITY [Suspect]
     Active Substance: DIROXIMEL FUMARATE
     Dosage: UNK
  3. TECFIDERA [Suspect]
     Active Substance: DIMETHYL FUMARATE
     Dosage: UNK
  4. TYSABRI [Suspect]
     Active Substance: NATALIZUMAB
     Dosage: UNK

REACTIONS (8)
  - Progressive multifocal leukoencephalopathy [Unknown]
  - Suicide attempt [Unknown]
  - Septic shock [Unknown]
  - Ankle fracture [Unknown]
  - Nervous system disorder [Unknown]
  - Fibula fracture [Unknown]
  - Ligament injury [Unknown]
  - Diarrhoea [Unknown]
